FAERS Safety Report 7677191-2 (Version None)
Quarter: 2011Q3

REPORT INFORMATION
  Report Type: 
  Country: None (occurrence: None)
  Receive Date: 20110811
  Receipt Date: 20110727
  Transmission Date: 20111222
  Serious: No
  Sender: FDA-Public Use
  Company Number: US-B.I. PHARMACEUTICALS,INC./RIDGEFIELD-2011-BP-01389BP

PATIENT
  Sex: Male

DRUGS (9)
  1. NIASPAN [Concomitant]
     Dosage: 1000 MG
  2. KEPPRA XR [Concomitant]
     Dosage: 750 MG
  3. PRADAXA [Suspect]
     Indication: ATRIAL FIBRILLATION
     Dosage: 300 MG
     Dates: start: 20110101
  4. DIOVAN HCT [Concomitant]
  5. MULTAQ [Concomitant]
     Dosage: 800 MG
  6. METOPROLOL TARTRATE [Concomitant]
     Dosage: 50 MG
  7. AMLODIPINE BESYLATE [Concomitant]
     Dosage: 10 MG
  8. LIPITOR [Concomitant]
     Dosage: 10 MG
  9. ASPIRIN [Concomitant]
     Dosage: 81 MG

REACTIONS (4)
  - GASTROOESOPHAGEAL REFLUX DISEASE [None]
  - OESOPHAGEAL PAIN [None]
  - DIARRHOEA [None]
  - DYSPEPSIA [None]
